FAERS Safety Report 7155457 (Version 2)
Quarter: 2024Q3

REPORT INFORMATION
  Report Type: Spontaneous
  Country: FR (occurrence: FR)
  Receive Date: 20091022
  Receipt Date: 20240824
  Transmission Date: 20241016
  Serious: Yes (Other)
  Sender: ROCHE
  Company Number: FR-ROCHE-662020

PATIENT
  Age: 46 Year
  Sex: Male

DRUGS (4)
  1. MYCOPHENOLATE MOFETIL [Suspect]
     Active Substance: MYCOPHENOLATE MOFETIL
     Indication: Behcet^s syndrome
     Route: 065
  2. INFLIXIMAB [Suspect]
     Active Substance: INFLIXIMAB
     Indication: Behcet^s syndrome
     Route: 065
  3. INFLIXIMAB [Suspect]
     Active Substance: INFLIXIMAB
     Dosage: 5 MG/KG PER INFUSION
     Route: 065
     Dates: start: 200701
  4. INFLIXIMAB [Suspect]
     Active Substance: INFLIXIMAB
     Dosage: 3 MG/KG PER INFUSION
     Route: 065
     Dates: start: 200601

REACTIONS (5)
  - Meningitis cryptococcal [Unknown]
  - Deafness bilateral [Unknown]
  - Hemiplegia [Unknown]
  - Apraxia [Unknown]
  - Confusional state [Unknown]
